FAERS Safety Report 9364581 (Version 1)
Quarter: 2013Q2

REPORT INFORMATION
  Report Type: Spontaneous
  Country: GB (occurrence: None)
  Receive Date: 20130619
  Receipt Date: 20130619
  Transmission Date: 20140414
  Serious: Yes (Other)
  Sender: FDA-Public Use
  Company Number: AUR-APL-2013-04872

PATIENT
  Age: 23 Year
  Sex: Female

DRUGS (4)
  1. FLUCONAZOLE (FLUCONAZOLE) [Suspect]
     Indication: PRODUCT USED FOR UNKNOWN INDICATION
     Dates: start: 20130524
  2. AMOXICILLIN (AMOXICILLIN) [Concomitant]
  3. BENZYDAMINE HYDROCHLORIDE (BENZYDAMINE HYDROCHLORIDE) [Concomitant]
  4. BREVINOR (NORMENSAL) [Concomitant]

REACTIONS (2)
  - Oedema mouth [None]
  - Oral pain [None]
